FAERS Safety Report 22121216 (Version 1)
Quarter: 2023Q1

REPORT INFORMATION
  Report Type: Spontaneous
  Country: JP (occurrence: JP)
  Receive Date: 20230321
  Receipt Date: 20230321
  Transmission Date: 20230418
  Serious: Yes (Other)
  Sender: FDA-Public Use
  Company Number: JP-JNJFOC-20230323485

PATIENT
  Age: 79 Year
  Sex: Male
  Weight: 65.6 kg

DRUGS (1)
  1. EPOPROSTENOL [Suspect]
     Active Substance: EPOPROSTENOL
     Indication: Product used for unknown indication
     Route: 042
     Dates: start: 20230307

REACTIONS (1)
  - Infusion site vasculitis [Recovering/Resolving]

NARRATIVE: CASE EVENT DATE: 20230307
